FAERS Safety Report 6765625-7 (Version None)
Quarter: 2010Q2

REPORT INFORMATION
  Report Type: 
  Country: None (occurrence: None)
  Receive Date: 20100611
  Receipt Date: 20100602
  Transmission Date: 20101027
  Serious: Yes (Other)
  Sender: FDA-Public Use
  Company Number: CA-PFIZER INC-2010069185

PATIENT
  Sex: Female

DRUGS (3)
  1. ZELDOX [Suspect]
     Dosage: UNK
  2. EFFEXOR [Suspect]
     Dosage: UNK
  3. SEROQUEL [Suspect]
     Dosage: UNK

REACTIONS (2)
  - CARDIAC VALVE DISEASE [None]
  - ELECTROCARDIOGRAM QT PROLONGED [None]
